FAERS Safety Report 5113355-X (Version None)
Quarter: 2006Q3

REPORT INFORMATION
  Report Type: 
  Country: None (occurrence: None)
  Receive Date: 20060920
  Receipt Date: 20060906
  Transmission Date: 20061208
  Serious: Yes (Death)
  Sender: FDA-Public Use
  Company Number: 229583

PATIENT
  Age: 65 Year
  Sex: Male
  Weight: 90.7 kg

DRUGS (3)
  1. BEVACIZUMAB (BEVACIZUMAB) PWDR + SOLVENT, INFUSION SOLN, 100MG [Suspect]
     Indication: NON-SMALL CELL LUNG CANCER
     Dosage: 1370 MG, Q3W, INTRAVENOUS
     Route: 042
     Dates: start: 20060727, end: 20060817
  2. CARBOPLATIN [Suspect]
     Indication: NON-SMALL CELL LUNG CANCER
     Dosage: 490 MG, Q3W, INTRAVENOUS
     Route: 042
     Dates: start: 20060727, end: 20060817
  3. GEMCITABINE [Suspect]
     Indication: NON-SMALL CELL LUNG CANCER
     Dosage: 2100 MG, DAYS 1, 8/Q3W, INTRAVENOUS
     Route: 042
     Dates: start: 20060727, end: 20060824

REACTIONS (2)
  - HAEMOPTYSIS [None]
  - LOSS OF CONSCIOUSNESS [None]
